FAERS Safety Report 21142381 (Version 1)
Quarter: 2022Q3

REPORT INFORMATION
  Report Type: Spontaneous
  Country: CA (occurrence: CA)
  Receive Date: 20220728
  Receipt Date: 20220728
  Transmission Date: 20221027
  Serious: Yes (Other)
  Sender: FDA-Public Use
  Company Number: CA-PFIZER INC-PV202200029826

PATIENT

DRUGS (12)
  1. LIPITOR [Suspect]
     Active Substance: ATORVASTATIN CALCIUM
     Dosage: UNK, 1X/DAY
  2. TELMISARTAN [Suspect]
     Active Substance: TELMISARTAN
     Dosage: 40 MG, 1X/DAY
  3. ASPIRIN [Suspect]
     Active Substance: ASPIRIN
     Dosage: 81 MG, 1X/DAY
  4. LAMOTRIGINE [Suspect]
     Active Substance: LAMOTRIGINE
     Dosage: 1 DF, DAILY (INCREASE 1TB EVERY 2 WEEKS UP TO 2 TB TWICE DAILY)
  5. VITAMIN D3 [Suspect]
     Active Substance: CHOLECALCIFEROL
     Dosage: 1000 IU, 1X/DAY
  6. PROLIA [Suspect]
     Active Substance: DENOSUMAB
     Dosage: 60 MG (SIX MONTHLY)
  7. MOBIC [Suspect]
     Active Substance: MELOXICAM
     Dosage: UNK, AS NEEDED
  8. BACLOFEN [Suspect]
     Active Substance: BACLOFEN
     Dosage: UNK, AS NEEDED
  9. TYLENOL [Suspect]
     Active Substance: ACETAMINOPHEN
     Dosage: UNK, AS NEEDED
  10. CALCIUM\CHOLECALCIFEROL\COPPER\MAGNESIUM\MANGANESE\ZINC [Suspect]
     Active Substance: CALCIUM\CHOLECALCIFEROL\COPPER\MAGNESIUM\MANGANESE\ZINC
     Dosage: 1 DF, DAILY (ONE TABLET)
  11. HYDROCORTISONE 1% IN ABSORBASE [Suspect]
     Active Substance: HYDROCORTISONE
     Dosage: UNK, AS NEEDED
  12. CLOBETASOL PROPIONATE [Suspect]
     Active Substance: CLOBETASOL PROPIONATE
     Dosage: UNK, AS NEEDED

REACTIONS (26)
  - Myocardial infarction [Recovered/Resolved]
  - Neuropathy peripheral [Unknown]
  - Syncope [Unknown]
  - Cataract [Unknown]
  - Dizziness [Unknown]
  - Knee arthroplasty [Unknown]
  - Hip arthroplasty [Unknown]
  - Cerebral disorder [Unknown]
  - Depression [Unknown]
  - Asthenia [Unknown]
  - Hypertension [Unknown]
  - Headache [Unknown]
  - Back pain [Unknown]
  - Myalgia [Unknown]
  - Radiculopathy [Unknown]
  - Feeling cold [Unknown]
  - Pain in extremity [Unknown]
  - Burning sensation [Unknown]
  - Hypoaesthesia [Unknown]
  - Arthralgia [Unknown]
  - Mobility decreased [Unknown]
  - Gait disturbance [Unknown]
  - Dysuria [Unknown]
  - Hypoacusis [Unknown]
  - Feeling abnormal [Unknown]
  - Arthralgia [Unknown]
